FAERS Safety Report 16889356 (Version 1)
Quarter: 2019Q4

REPORT INFORMATION
  Report Type: Report from Study
  Country: US (occurrence: US)
  Receive Date: 20191007
  Receipt Date: 20191007
  Transmission Date: 20200122
  Serious: Yes (Hospitalization, Other)
  Sender: FDA-Public Use
  Company Number: US-HBP-2019US019601

PATIENT
  Age: 53 Year
  Sex: Male

DRUGS (1)
  1. VALCHLOR [Suspect]
     Active Substance: MECHLORETHAMINE
     Indication: CUTANEOUS T-CELL LYMPHOMA
     Dosage: UNK, 2/WEEK
     Route: 061
     Dates: start: 20190218

REACTIONS (6)
  - Erythema [Not Recovered/Not Resolved]
  - Rash [Recovering/Resolving]
  - Stevens-Johnson syndrome [Recovered/Resolved]
  - Mucocutaneous rash [Recovered/Resolved]
  - Scab [Recovered/Resolved]
  - Rash papular [Recovered/Resolved]

NARRATIVE: CASE EVENT DATE: 201903
